FAERS Safety Report 14572421 (Version 1)
Quarter: 2018Q1

REPORT INFORMATION
  Report Type: Report from Study
  Country: US (occurrence: US)
  Receive Date: 20180226
  Receipt Date: 20180226
  Transmission Date: 20180509
  Serious: Yes (Other)
  Sender: FDA-Public Use
  Company Number: US-JNJFOC-20180232899

PATIENT
  Sex: Female

DRUGS (15)
  1. AMLODIPINE [Concomitant]
     Active Substance: AMLODIPINE BESYLATE
  2. TIZANIDINE. [Concomitant]
     Active Substance: TIZANIDINE
  3. LEVOTHYROXINE. [Concomitant]
     Active Substance: LEVOTHYROXINE
  4. IMBRUVICA [Suspect]
     Active Substance: IBRUTINIB
     Indication: CHRONIC LYMPHOCYTIC LEUKAEMIA
     Route: 048
     Dates: start: 20150622
  5. IMBRUVICA [Suspect]
     Active Substance: IBRUTINIB
     Indication: NON-HODGKIN^S LYMPHOMA
     Route: 048
     Dates: start: 20150622
  6. ATORVASTATIN CALCIUM. [Concomitant]
     Active Substance: ATORVASTATIN CALCIUM
  7. DONEPEZIL. [Concomitant]
     Active Substance: DONEPEZIL
  8. HYDROCHLOROTHIAZIDE. [Concomitant]
     Active Substance: HYDROCHLOROTHIAZIDE
  9. FOLIC ACID. [Concomitant]
     Active Substance: FOLIC ACID
  10. KLONOPIN [Concomitant]
     Active Substance: CLONAZEPAM
  11. CELEXA [Concomitant]
     Active Substance: CITALOPRAM HYDROBROMIDE
  12. LYRICA [Concomitant]
     Active Substance: PREGABALIN
  13. RANITIDINE. [Concomitant]
     Active Substance: RANITIDINE
  14. BUSPIRONE [Concomitant]
     Active Substance: BUSPIRONE HYDROCHLORIDE
  15. TRAMADOL. [Concomitant]
     Active Substance: TRAMADOL

REACTIONS (1)
  - Renal mass [Unknown]
